FAERS Safety Report 5702081-1 (Version None)
Quarter: 2008Q2

REPORT INFORMATION
  Report Type: 
  Country: None (occurrence: None)
  Receive Date: 20080411
  Receipt Date: 20070821
  Transmission Date: 20081010
  Serious: Yes (Hospitalization)
  Sender: FDA-Public Use
  Company Number: US-ABBOTT-07P-163-0378783-00

PATIENT
  Age: 86 Year
  Sex: Female

DRUGS (3)
  1. DEPAKOTE [Suspect]
     Indication: AGITATION
     Route: 048
     Dates: start: 20070501, end: 20070819
  2. DEPAKOTE [Suspect]
     Indication: HEADACHE
  3. UNKNOWN MEDICATION [Concomitant]
     Indication: DRUG USE FOR UNKNOWN INDICATION

REACTIONS (1)
  - HYPONATRAEMIA [None]
